FAERS Safety Report 26173245 (Version 1)
Quarter: 2025Q4

REPORT INFORMATION
  Report Type: Report from Study
  Country: US (occurrence: US)
  Receive Date: 20251218
  Receipt Date: 20251218
  Transmission Date: 20260119
  Serious: Yes (Other)
  Sender: ALEXION PHARMACEUTICALS
  Company Number: US-ASTRAZENECA-202512NAM007347US

PATIENT
  Age: 43 Year
  Sex: Male

DRUGS (1)
  1. STRENSIQ [Suspect]
     Active Substance: ASFOTASE ALFA
     Indication: Hypophosphataemia
     Dosage: 80 MILLIGRAM, SIX TIMES/WEEK (ROTATE INJECTION SITES)
     Route: 065

REACTIONS (9)
  - Neuropathy peripheral [Unknown]
  - Condition aggravated [Unknown]
  - Dry skin [Unknown]
  - Lip dry [Unknown]
  - Paraesthesia oral [Unknown]
  - Lip pain [Unknown]
  - Anxiety [Unknown]
  - Migraine [Unknown]
  - Vitamin B6 deficiency [Unknown]
